FAERS Safety Report 8017428-3 (Version None)
Quarter: 2012Q1

REPORT INFORMATION
  Report Type: 
  Country: None (occurrence: None)
  Receive Date: 20120103
  Receipt Date: 20111228
  Transmission Date: 20120608
  Serious: Yes (Other)
  Sender: FDA-Public Use
  Company Number: US-ASTRAZENECA-2009SE13245

PATIENT
  Age: 15147 Day
  Sex: Female
  Weight: 117.9 kg

DRUGS (15)
  1. SEROQUEL [Suspect]
     Indication: BIPOLAR DISORDER
     Route: 048
     Dates: start: 20030501, end: 20090501
  2. NEURONTIN [Concomitant]
     Indication: NEURALGIA
     Route: 048
     Dates: start: 20071009
  3. OXYCODONE-ACETOAMINOPHEN [Concomitant]
     Indication: PAIN
     Dosage: 5-325 MG TAKE 1-2 TABLETS BY MOUTH EVERY4-6 HOURS
     Route: 048
     Dates: start: 20071009
  4. SEROQUEL [Suspect]
     Indication: PSYCHOTIC DISORDER
     Route: 048
     Dates: start: 20030501, end: 20090501
  5. SEROQUEL [Suspect]
     Route: 048
     Dates: start: 20071009
  6. ABILIFY [Concomitant]
     Dosage: DOSAGE VARIES
     Dates: start: 19970101
  7. SEROQUEL [Suspect]
     Route: 048
     Dates: start: 20071009
  8. SEROQUEL [Suspect]
     Indication: CONVULSION
     Route: 048
     Dates: start: 20030501, end: 20090501
  9. SEROQUEL [Suspect]
     Route: 048
     Dates: start: 20071009
  10. SEROQUEL [Suspect]
     Indication: BIPOLAR I DISORDER
     Route: 048
     Dates: start: 20030501, end: 20090501
  11. SEROQUEL [Suspect]
     Route: 048
     Dates: start: 20071009
  12. SEROQUEL [Suspect]
     Route: 048
     Dates: start: 20071009
  13. SEROQUEL [Suspect]
     Indication: PARANOIA
     Route: 048
     Dates: start: 20030501, end: 20090501
  14. RISPERDAL [Concomitant]
     Dosage: DOSAGE VARIES
     Dates: start: 19970101
  15. METHYLPREDNISOLONE [Concomitant]
     Indication: SCIATICA
     Route: 048

REACTIONS (4)
  - HYPERTENSION [None]
  - NEUROPATHY PERIPHERAL [None]
  - TYPE 2 DIABETES MELLITUS [None]
  - OBESITY [None]
